FAERS Safety Report 9407721 (Version 2)
Quarter: 2013Q3

REPORT INFORMATION
  Report Type: Spontaneous
  Country: FR (occurrence: FR)
  Receive Date: 20130718
  Receipt Date: 20130916
  Transmission Date: 20140515
  Serious: Yes (Life-Threatening, Hospitalization, Other)
  Sender: FDA-Public Use
  Company Number: FR-ELI_LILLY_AND_COMPANY-FR201307004241

PATIENT
  Age: 57 Year
  Sex: Male

DRUGS (5)
  1. ZYPADHERA [Suspect]
     Indication: PSYCHOTIC DISORDER
     Dosage: 300 MG, 2/M
     Route: 030
     Dates: start: 201301, end: 20130710
  2. ZYPADHERA [Suspect]
     Indication: SCHIZOPHRENIA
  3. TERCIAN [Concomitant]
     Indication: SCHIZOPHRENIA
     Dosage: BETWEEN 20 TO 80 DROPS,  TID
     Dates: start: 201301
  4. VALIUM [Concomitant]
     Indication: SCHIZOPHRENIA
     Dosage: 30 GTT, TID, AS NEEDED
  5. ZOPICLONE [Concomitant]
     Indication: SCHIZOPHRENIA
     Dosage: UNK, UNKNOWN

REACTIONS (14)
  - Vertigo [Recovered/Resolved]
  - Respiratory distress [Recovered/Resolved]
  - Tachycardia [Recovered/Resolved]
  - Hyperthermia [Recovered/Resolved]
  - Coma [Recovered/Resolved]
  - Confusional state [Recovered/Resolved]
  - Aggression [Recovered/Resolved]
  - Dysarthria [Recovered/Resolved]
  - Lung disorder [Unknown]
  - Irritability [Unknown]
  - Tongue spasm [Unknown]
  - Hallucination [Unknown]
  - Delirium [Recovering/Resolving]
  - Agitation [Recovering/Resolving]
